FAERS Safety Report 9809060 (Version 6)
Quarter: 2014Q4

REPORT INFORMATION
  Report Type: Spontaneous
  Country: US (occurrence: US)
  Receive Date: 20140110
  Receipt Date: 20141112
  Transmission Date: 20150529
  Serious: Yes (Hospitalization, Other)
  Sender: FDA-Public Use
  Company Number: US-MERCK-1401USA000988

PATIENT
  Sex: Female
  Weight: 69.84 kg

DRUGS (6)
  1. ALENDRONATE SODIUM. [Suspect]
     Active Substance: ALENDRONATE SODIUM
     Dosage: 70 MG, UNK
     Dates: start: 20080716, end: 20120419
  2. FOSAMAX PLUS D [Suspect]
     Active Substance: ALENDRONATE SODIUM\CHOLECALCIFEROL
     Indication: OSTEOPOROSIS
     Dosage: 70 MG, WEEKLY
     Route: 048
     Dates: start: 2005, end: 2010
  3. OS-CAL (CALCIUM CARBONATE) [Concomitant]
     Dosage: 500 MG, UNK
     Dates: start: 1985, end: 2011
  4. LEVOTHYROXINE SODIUM. [Concomitant]
     Active Substance: LEVOTHYROXINE SODIUM
     Indication: HYPOPARATHYROIDISM
     Dosage: UNK
     Dates: start: 1990
  5. FOSAMAX [Suspect]
     Active Substance: ALENDRONATE SODIUM
     Indication: OSTEOPOROSIS
     Dosage: 70 MG, WEEKLY
     Route: 048
     Dates: start: 2000, end: 20071206
  6. VITAMINS (UNSPECIFIED) [Concomitant]
     Active Substance: VITAMINS
     Dosage: UNK
     Dates: start: 1985

REACTIONS (18)
  - Open reduction of fracture [Unknown]
  - Peroneal nerve palsy [Unknown]
  - Dacryostenosis acquired [Unknown]
  - Femur fracture [Unknown]
  - Open reduction of fracture [Unknown]
  - Oedema peripheral [Unknown]
  - Femur fracture [Recovering/Resolving]
  - Aortic aneurysm [Unknown]
  - Arthritis [Unknown]
  - Anaemia postoperative [Unknown]
  - Pubis fracture [Unknown]
  - Body temperature increased [Recovered/Resolved]
  - Spinal fracture [Unknown]
  - Dizziness [Unknown]
  - Blister [Unknown]
  - Packed red blood cell transfusion [Unknown]
  - Post procedural haematoma [Unknown]
  - Anxiety [Unknown]

NARRATIVE: CASE EVENT DATE: 2000
